FAERS Safety Report 6240908-8 (Version None)
Quarter: 2009Q2

REPORT INFORMATION
  Report Type: 
  Country: None (occurrence: None)
  Receive Date: 20090623
  Receipt Date: 20090526
  Transmission Date: 20091009
  Serious: No
  Sender: FDA-Public Use
  Company Number: US-BAYER-200910689BCC

PATIENT
  Age: 88 Year
  Sex: Female
  Weight: 59 kg

DRUGS (6)
  1. ALEVE (CAPLET) [Suspect]
     Indication: ARTHRITIS
     Dosage: TOTAL DAILY DOSE: 440 MG  UNIT DOSE: 220 MG
     Route: 048
     Dates: start: 20090211
  2. VYTORIN [Concomitant]
  3. LOTREL [Concomitant]
  4. WALGREEN'S CALCIUM 600 PLUS D [Concomitant]
  5. FISH OIL OMEGA 3 [Concomitant]
  6. ARIMIDEX [Concomitant]

REACTIONS (2)
  - DIZZINESS [None]
  - FATIGUE [None]
